FAERS Safety Report 21256207 (Version 3)
Quarter: 2022Q3

REPORT INFORMATION
  Report Type: Report from Study
  Country: TR (occurrence: TR)
  Receive Date: 20220825
  Receipt Date: 20220913
  Transmission Date: 20221027
  Serious: Yes (Life-Threatening, Hospitalization, Other)
  Sender: FDA-Public Use
  Company Number: TR-BRISTOL-MYERS SQUIBB COMPANY-2022-088464

PATIENT
  Age: 58 Year
  Sex: Female
  Weight: 82 kg

DRUGS (4)
  1. POMALIDOMIDE [Suspect]
     Active Substance: POMALIDOMIDE
     Indication: Plasma cell myeloma
     Dosage: DAYS 1-21 FOR EACH 28 DAY CYCLE
     Route: 048
     Dates: start: 20220707, end: 20220807
  2. POMALIDOMIDE [Suspect]
     Active Substance: POMALIDOMIDE
     Dosage: DAYS 1-21 FOR EACH 28 DAY CYCLE
     Route: 048
     Dates: start: 20220902
  3. DEXAMETHASONE [Suspect]
     Active Substance: DEXAMETHASONE
     Indication: Plasma cell myeloma
     Dosage: D1, D8, D15, AND D22 FOR EACH 28-DAY CYCLE
     Route: 048
     Dates: start: 20220707, end: 20220805
  4. DEXAMETHASONE [Suspect]
     Active Substance: DEXAMETHASONE
     Dosage: D1, D8, D15, AND D22 FOR EACH 28-DAY CYCLE
     Route: 048
     Dates: start: 20220825

REACTIONS (3)
  - Asthma [Recovered/Resolved]
  - Hypogammaglobulinaemia [Recovered/Resolved]
  - Pneumonia parainfluenzae viral [Recovered/Resolved]

NARRATIVE: CASE EVENT DATE: 20220805
